FAERS Safety Report 14224078 (Version 1)
Quarter: 2017Q4

REPORT INFORMATION
  Report Type: Spontaneous
  Country: US (occurrence: US)
  Receive Date: 20171124
  Receipt Date: 20171124
  Transmission Date: 20180321
  Serious: Yes (Disabling)
  Sender: FDA-Public Use
  Company Number: None

PATIENT
  Sex: Male
  Weight: 74.25 kg

DRUGS (2)
  1. SOTRET [Suspect]
     Active Substance: ISOTRETINOIN
     Indication: ACNE
     Dosage: ?          QUANTITY:1 CAPSULE(S);?
     Route: 048
     Dates: start: 20080720, end: 20090201
  2. RANITIDINE. [Concomitant]
     Active Substance: RANITIDINE

REACTIONS (9)
  - Inflammation [None]
  - Erythema [None]
  - Alopecia [None]
  - Dry skin [None]
  - Skin exfoliation [None]
  - Hypohidrosis [None]
  - Hot flush [None]
  - Impaired quality of life [None]
  - Migraine [None]

NARRATIVE: CASE EVENT DATE: 20080801
